FAERS Safety Report 8872088 (Version 1)
Quarter: 2012Q4

REPORT INFORMATION
  Report Type: 
  Country: US (occurrence: US)
  Receive Date: 20121029
  Receipt Date: 20121029
  Transmission Date: 20130627
  Serious: Yes (Hospitalization)
  Sender: FDA-Public Use
  Company Number: US-AMGEN-USASP2012067169

PATIENT
  Sex: Female

DRUGS (2)
  1. SENSIPAR [Suspect]
     Indication: OFF LABEL USE
     Dosage: 30 mg, bid
  2. VITAMIN D3 [Concomitant]

REACTIONS (3)
  - Respiratory failure [Unknown]
  - Sepsis [Unknown]
  - Wrong technique in drug usage process [Not Recovered/Not Resolved]
